FAERS Safety Report 5257452-7 (Version None)
Quarter: 2007Q1

REPORT INFORMATION
  Report Type: 
  Country: None (occurrence: None)
  Receive Date: 20070307
  Receipt Date: 20060808
  Transmission Date: 20070707
  Serious: No
  Sender: FDA-Public Use
  Company Number: US-GLAXOSMITHKLINE-A0615769A

PATIENT
  Age: 63 Year
  Sex: Male

DRUGS (5)
  1. REQUIP [Suspect]
     Indication: RESTLESS LEGS SYNDROME
     Dosage: .25MG SEE DOSAGE TEXT
     Route: 048
     Dates: start: 20060730, end: 20060808
  2. ZOCOR [Concomitant]
  3. MORPHINE [Concomitant]
  4. ANTI HYPERTENSIVE [Concomitant]
  5. METHADONE HCL [Concomitant]

REACTIONS (3)
  - ASTHENIA [None]
  - DYSARTHRIA [None]
  - TREATMENT NONCOMPLIANCE [None]
